FAERS Safety Report 7738348-5 (Version None)
Quarter: 2011Q3

REPORT INFORMATION
  Report Type: 
  Country: None (occurrence: None)
  Receive Date: 20110908
  Receipt Date: 20110809
  Transmission Date: 20111222
  Serious: No
  Sender: FDA-Public Use
  Company Number: US-BAYER-2011-072083

PATIENT
  Sex: Female
  Weight: 73 kg

DRUGS (2)
  1. ALEVE (CAPLET) [Suspect]
     Indication: BACK PAIN
     Dosage: 2 DF, ONCE
     Route: 048
     Dates: start: 20070101, end: 20070101
  2. ALEVE (CAPLET) [Suspect]
     Indication: MYALGIA

REACTIONS (3)
  - LOCALISED OEDEMA [None]
  - HYPERSENSITIVITY [None]
  - EYELID OEDEMA [None]
